FAERS Safety Report 16694656 (Version 1)
Quarter: 2019Q3

REPORT INFORMATION
  Report Type: Spontaneous
  Country: US (occurrence: US)
  Receive Date: 20190812
  Receipt Date: 20190812
  Transmission Date: 20191004
  Serious: No
  Sender: FDA-Public Use
  Company Number: US-ELI_LILLY_AND_COMPANY-US201907016527

PATIENT
  Sex: Female

DRUGS (1)
  1. TALTZ [Suspect]
     Active Substance: IXEKIZUMAB
     Indication: PSORIATIC ARTHROPATHY
     Dosage: UNK UNK, UNKNOWN
     Route: 065

REACTIONS (5)
  - Skin mass [Not Recovered/Not Resolved]
  - Skin exfoliation [Recovering/Resolving]
  - Paraesthesia [Recovering/Resolving]
  - Skin disorder [Recovering/Resolving]
  - Skin ulcer [Recovering/Resolving]
